FAERS Safety Report 6695152-7 (Version None)
Quarter: 2010Q2

REPORT INFORMATION
  Report Type: 
  Country: None (occurrence: None)
  Receive Date: 20100421
  Receipt Date: 20100415
  Transmission Date: 20101027
  Serious: Yes (Other)
  Sender: FDA-Public Use
  Company Number: 561277

PATIENT
  Age: 50 Year
  Sex: Male

DRUGS (2)
  1. HEPARIN SODIUM INJECTION [Suspect]
     Indication: DRUG USE FOR UNKNOWN INDICATION
  2. (TAZOCIN) [Suspect]
     Indication: DRUG USE FOR UNKNOWN INDICATION
     Dosage: 4.5 GRAIN, 1 EVERY 8 HOUR(S), INTRAVENOUS
     Route: 042

REACTIONS (1)
  - RASH MACULAR [None]
